FAERS Safety Report 26024035 (Version 4)
Quarter: 2025Q4

REPORT INFORMATION
  Report Type: Spontaneous
  Country: JP (occurrence: JP)
  Receive Date: 20251111
  Receipt Date: 20251225
  Transmission Date: 20260118
  Serious: Yes (Death, Hospitalization, Other)
  Sender: GLAXOSMITHKLINE
  Company Number: JP-GSKJP-JP2025144690AA

PATIENT
  Age: 82 Year
  Sex: Female
  Weight: 51 kg

DRUGS (2)
  1. MOMELOTINIB [Suspect]
     Active Substance: MOMELOTINIB
     Indication: Myelofibrosis
     Dosage: 200 MG, 1D, IN THE MORNING
  2. RUXOLITINIB [Concomitant]
     Active Substance: RUXOLITINIB
     Indication: Myelofibrosis
     Dosage: UNK

REACTIONS (7)
  - Myelofibrosis [Fatal]
  - Chondrocalcinosis [Fatal]
  - Immobilisation syndrome [Fatal]
  - Neoplasm [Fatal]
  - Pyrexia [Recovering/Resolving]
  - Diarrhoea [Unknown]
  - Urinary tract infection [Recovering/Resolving]

NARRATIVE: CASE EVENT DATE: 20250813
